FAERS Safety Report 10398338 (Version 11)
Quarter: 2015Q3

REPORT INFORMATION
  Report Type: Report from Study
  Country: US (occurrence: US)
  Receive Date: 20140821
  Receipt Date: 20150728
  Transmission Date: 20151125
  Serious: Yes (Life-Threatening, Hospitalization, Other)
  Sender: FDA-Public Use
  Company Number: US-ALEXION PHARMACEUTICALS INC.-A201403102

PATIENT

DRUGS (2)
  1. SOLIRIS [Suspect]
     Active Substance: ECULIZUMAB
     Indication: PAROXYSMAL NOCTURNAL HAEMOGLOBINURIA
     Dosage: 900 MG, UNK
     Route: 042
  2. SOLIRIS [Suspect]
     Active Substance: ECULIZUMAB
     Dosage: 1200 MG, UNK
     Route: 042
     Dates: start: 20150119

REACTIONS (25)
  - Chromaturia [Not Recovered/Not Resolved]
  - Dysphagia [Not Recovered/Not Resolved]
  - Dyspnoea [Not Recovered/Not Resolved]
  - Pain [Unknown]
  - Stress [Unknown]
  - Drug ineffective [Unknown]
  - Back pain [Recovered/Resolved]
  - Photophobia [Recovered/Resolved]
  - Cerebrovascular accident [Unknown]
  - Blood count abnormal [Unknown]
  - Pallor [Not Recovered/Not Resolved]
  - Weight decreased [Recovered/Resolved]
  - Haemolysis [Unknown]
  - Arthralgia [Recovered/Resolved]
  - Fatigue [Not Recovered/Not Resolved]
  - Fall [Not Recovered/Not Resolved]
  - Lactate dehydrogenase urine increased [Recovered/Resolved]
  - Haematocrit abnormal [Unknown]
  - Haemoglobin abnormal [Unknown]
  - Blood lactate dehydrogenase increased [Unknown]
  - Feeling abnormal [Unknown]
  - Chromaturia [Unknown]
  - Platelet count abnormal [Unknown]
  - Pyrexia [Recovered/Resolved]
  - Incorrect dose administered [Unknown]

NARRATIVE: CASE EVENT DATE: 20140804
